FAERS Safety Report 4312357-0 (Version None)
Quarter: 2004Q1

REPORT INFORMATION
  Report Type: 
  Country: None (occurrence: None)
  Receive Date: 20040303
  Receipt Date: 20040224
  Transmission Date: 20041129
  Serious: Yes (Other)
  Sender: FDA-Public Use
  Company Number: 23179

PATIENT
  Age: 33 Year
  Sex: Male

DRUGS (2)
  1. ALDARA [Suspect]
     Indication: CONDYLOMA ACUMINATUM
     Dosage: (, 3 IN 1 WEEK (S)), TOPICAL
     Route: 061
     Dates: start: 20040211
  2. WELLBUTRIN [Concomitant]

REACTIONS (4)
  - ACCIDENTAL EXPOSURE [None]
  - INFLUENZA LIKE ILLNESS [None]
  - MEDICATION ERROR [None]
  - SWELLING FACE [None]
